FAERS Safety Report 8369650-4 (Version None)
Quarter: 2012Q1

REPORT INFORMATION
  Report Type: 
  Country: None (occurrence: None)
  Receive Date: 20120323
  Receipt Date: 20111220
  Transmission Date: 20120608
  Serious: Yes (Other)
  Sender: FDA-Public Use
  Company Number: 163-21880-11112779

PATIENT
  Age: 63 Year
  Sex: Male

DRUGS (18)
  1. REVLIMID [Suspect]
     Indication: MULTIPLE MYELOMA
     Dosage: 15 MG, 1 IN 1 D, PO : 10 MG, 1 IN 1 D, PO : 5 MG, QD X 21 DAYS OFF 14 DAYS, PO
     Route: 048
     Dates: start: 20110601
  2. REVLIMID [Suspect]
     Indication: MULTIPLE MYELOMA
     Dosage: 15 MG, 1 IN 1 D, PO : 10 MG, 1 IN 1 D, PO : 5 MG, QD X 21 DAYS OFF 14 DAYS, PO
     Route: 048
     Dates: start: 20100701
  3. REVLIMID [Suspect]
     Indication: MULTIPLE MYELOMA
     Dosage: 15 MG, 1 IN 1 D, PO : 10 MG, 1 IN 1 D, PO : 5 MG, QD X 21 DAYS OFF 14 DAYS, PO
     Route: 048
     Dates: start: 20110201
  4. REVLIMID [Suspect]
     Indication: MULTIPLE MYELOMA
     Dosage: 15 MG, 1 IN 1 D, PO : 10 MG, 1 IN 1 D, PO : 5 MG, QD X 21 DAYS OFF 14 DAYS, PO
     Route: 048
     Dates: start: 20110915
  5. LEVOTHYROXINE SODIUM [Concomitant]
  6. BETIMOL [Concomitant]
  7. CALCITRIOL [Concomitant]
  8. AMITRIPTYLINE HCL [Concomitant]
  9. DEXAMETHASONE [Concomitant]
  10. DOCUSATE SODIUM [Concomitant]
  11. POLYETHYLENE GLYCOL [Concomitant]
  12. AMOXICILLIN [Concomitant]
  13. OMEPRAZOLE [Concomitant]
  14. ASPIRIN [Concomitant]
  15. CALCIUM ACETATE [Concomitant]
  16. FLUTICASONE FUROATE [Concomitant]
  17. KETOCONAZOLE [Concomitant]
  18. B COMPLEX + VITAMIN C + FOLIC ACID (DIALYVITE 3000) [Concomitant]

REACTIONS (1)
  - NEUTROPHIL COUNT DECREASED [None]
